FAERS Safety Report 4722335-5 (Version None)
Quarter: 2005Q3

REPORT INFORMATION
  Report Type: 
  Country: None (occurrence: None)
  Receive Date: 20050722
  Receipt Date: 20050225
  Transmission Date: 20060218
  Serious: No
  Sender: FDA-Public Use
  Company Number: US-GLAXOSMITHKLINE-A0547379A

PATIENT
  Age: 63 Year
  Sex: Male
  Weight: 90.5 kg

DRUGS (4)
  1. AVANDIA [Suspect]
     Dosage: 4MG TWICE PER DAY
     Route: 048
     Dates: end: 20050224
  2. GLUCOTROL [Concomitant]
  3. GLUCOPHAGE [Concomitant]
  4. DEPAKOTE [Concomitant]

REACTIONS (2)
  - PRURITUS [None]
  - RASH [None]
